FAERS Safety Report 9880029 (Version 1)
Quarter: 2014Q1

REPORT INFORMATION
  Report Type: Spontaneous
  Country: US (occurrence: US)
  Receive Date: 20140207
  Receipt Date: 20140207
  Transmission Date: 20141002
  Serious: Yes (Other)
  Sender: FDA-Public Use
  Company Number: US-BIOGENIDEC-2014BI009779

PATIENT
  Sex: Male

DRUGS (2)
  1. AVONEX [Suspect]
     Indication: MULTIPLE SCLEROSIS
     Route: 030
  2. AVONEX [Suspect]
     Indication: MULTIPLE SCLEROSIS
     Route: 030

REACTIONS (10)
  - Knee arthroplasty [Recovered/Resolved]
  - Shoulder operation [Recovered/Resolved]
  - Gait disturbance [Not Recovered/Not Resolved]
  - Micturition disorder [Not Recovered/Not Resolved]
  - Fall [Recovered/Resolved]
  - Spinal cord disorder [Unknown]
  - Burning sensation [Unknown]
  - Arthropathy [Recovered/Resolved]
  - Night sweats [Recovered/Resolved]
  - Paraesthesia [Unknown]
